FAERS Safety Report 5442399-3 (Version None)
Quarter: 2007Q3

REPORT INFORMATION
  Report Type: 
  Country: None (occurrence: None)
  Receive Date: 20070904
  Receipt Date: 20070823
  Transmission Date: 20080115
  Serious: Yes (Other)
  Sender: FDA-Public Use
  Company Number: ES-PFIZER INC-2007069991

PATIENT
  Age: 79 Year
  Sex: Male

DRUGS (3)
  1. XALATAN [Suspect]
     Route: 047
  2. ZOLEDRONIC ACID [Suspect]
     Indication: PLASMACYTOMA
     Route: 042
     Dates: start: 20061128, end: 20070613
  3. ZOLADEX [Suspect]

REACTIONS (1)
  - ATRIAL FLUTTER [None]
